FAERS Safety Report 4949311-1 (Version None)
Quarter: 2006Q1

REPORT INFORMATION
  Report Type: 
  Country: None (occurrence: None)
  Receive Date: 20060315
  Receipt Date: 20060307
  Transmission Date: 20060701
  Serious: Yes (Hospitalization)
  Sender: FDA-Public Use
  Company Number: 2006BI002511

PATIENT
  Age: 55 Year
  Sex: Female
  Weight: 72.5755 kg

DRUGS (3)
  1. AVONEX [Suspect]
     Indication: MULTIPLE SCLEROSIS
     Dosage: 30 UG; QW; IM
     Route: 030
     Dates: start: 19980801, end: 20030801
  2. AVONEX [Suspect]
     Indication: MULTIPLE SCLEROSIS
     Dosage: 30 UG; QW; IM
     Route: 030
     Dates: start: 20030801
  3. NORTRIPTYLINE HCL [Concomitant]

REACTIONS (11)
  - ARTHRALGIA [None]
  - BACK PAIN [None]
  - CONDITION AGGRAVATED [None]
  - DRY MOUTH [None]
  - HEADACHE [None]
  - KNEE ARTHROPLASTY [None]
  - MENOPAUSE [None]
  - NERVE COMPRESSION [None]
  - OSTEOPENIA [None]
  - PAIN [None]
  - PROCEDURAL PAIN [None]
